FAERS Safety Report 5113220-8 (Version None)
Quarter: 2006Q3

REPORT INFORMATION
  Report Type: 
  Country: None (occurrence: None)
  Receive Date: 20060920
  Receipt Date: 20060901
  Transmission Date: 20061208
  Serious: Yes (Hospitalization)
  Sender: FDA-Public Use
  Company Number: US200609001481

PATIENT
  Sex: Male
  Weight: 83.4 kg

DRUGS (5)
  1. ZYPREXA [Suspect]
     Dates: start: 20000101
  2. HALDOL [Concomitant]
  3. FLUOXETINE/NA/(FLUOXETINE) [Concomitant]
  4. SERTRALINE [Concomitant]
  5. VENLAFAXINE HCL [Concomitant]

REACTIONS (6)
  - HYPERTENSION [None]
  - HYPOGLYCAEMIA [None]
  - METABOLIC DISORDER [None]
  - MYOCARDIAL ISCHAEMIA [None]
  - STENT PLACEMENT [None]
  - WEIGHT DECREASED [None]
